FAERS Safety Report 10133695 (Version 1)
Quarter: 2014Q2

REPORT INFORMATION
  Report Type: Spontaneous
  Country: IT (occurrence: IT)
  Receive Date: 20140428
  Receipt Date: 20140428
  Transmission Date: 20141212
  Serious: Yes (Other)
  Sender: FDA-Public Use
  Company Number: IT-TEVA-475792ISR

PATIENT
  Age: 60 Year
  Sex: Female

DRUGS (6)
  1. LORAZEPAM [Suspect]
     Indication: MEDICATION ERROR
     Dosage: 1 MILLIGRAM DAILY;
     Route: 048
     Dates: start: 20140328, end: 20140328
  2. RISPERDAL - JANSSEN CILAG S.P.A. [Suspect]
     Indication: MEDICATION ERROR
     Dosage: 4 MILLIGRAM DAILY;
     Route: 048
     Dates: start: 20140328, end: 20140328
  3. ABILIFY - 10 MG COMPRESSE - OTSUKA PHARMACEUTICAL EUROPE LTD [Suspect]
     Indication: MEDICATION ERROR
     Dosage: 10 MILLIGRAM DAILY;
     Route: 048
     Dates: start: 20140328, end: 20140328
  4. DEPAKIN CHRONO - 500 MG COMPRESSE A RILASCIO PROLUNGATO - BB FARMA SRL [Suspect]
     Indication: MEDICATION ERROR
     Dosage: 500 MILLIGRAM DAILY;
     Route: 048
     Dates: start: 20140328, end: 20140328
  5. AKINETON - 4 MG COMPRESSE A RILASCIO PROLUNGATO - LABORATORIO [Suspect]
     Indication: MEDICATION ERROR
     Dosage: 4 MILLIGRAM DAILY;
     Route: 048
     Dates: start: 20140328, end: 20140328
  6. CLOZAPINE [Suspect]
     Indication: MEDICATION ERROR
     Dosage: 100 MILLIGRAM DAILY;
     Route: 048
     Dates: start: 20140328, end: 20140328

REACTIONS (1)
  - Sopor [Unknown]
